FAERS Safety Report 4600522-4 (Version None)
Quarter: 2005Q1

REPORT INFORMATION
  Report Type: 
  Country: None (occurrence: None)
  Receive Date: 20050304
  Receipt Date: 20041220
  Transmission Date: 20050727
  Serious: Yes (Other)
  Sender: FDA-Public Use
  Company Number: 2005022377

PATIENT
  Sex: Female
  Weight: 93 kg

DRUGS (3)
  1. BEXTRA [Suspect]
     Indication: PAIN
     Dosage: 40 MG (20 MG, 2 IN 1 D), ORAL
     Route: 048
     Dates: start: 20040601
  2. FEXOFENADINE HYDROCHLORIDE [Concomitant]
     Indication: PAIN
     Dosage: 40 MG (20 MG, 2 IN 1 D), ORAL
     Route: 048
     Dates: start: 20040601
  3. FEXOFENADINE HYDROCHLORIDE [Concomitant]

REACTIONS (7)
  - DYSPNOEA [None]
  - GINGIVAL BLEEDING [None]
  - GINGIVITIS [None]
  - MEDICAL DEVICE COMPLICATION [None]
  - POST PROCEDURAL PAIN [None]
  - TONGUE BLISTERING [None]
  - URINARY TRACT INFECTION [None]
